FAERS Safety Report 18912863 (Version 1)
Quarter: 2021Q1

REPORT INFORMATION
  Report Type: Spontaneous
  Country: US (occurrence: US)
  Receive Date: 20210219
  Receipt Date: 20210219
  Transmission Date: 20210420
  Serious: No
  Sender: FDA-Public Use
  Company Number: US-009507513-2102USA006736

PATIENT
  Sex: Female

DRUGS (1)
  1. NEXPLANON [Suspect]
     Active Substance: ETONOGESTREL
     Indication: CONTRACEPTION
     Dosage: 68 MILLIGRAM, ONCE
     Route: 059
     Dates: start: 202004

REACTIONS (7)
  - Anxiety [Unknown]
  - Pain [Unknown]
  - Dysmenorrhoea [Unknown]
  - Irritability [Unknown]
  - Menstruation irregular [Unknown]
  - Breast tenderness [Unknown]
  - Depression [Unknown]
